FAERS Safety Report 15838103 (Version 1)
Quarter: 2018Q4

REPORT INFORMATION
  Report Type: Spontaneous
  Country: US (occurrence: US)
  Receive Date: 20181222
  Receipt Date: 20181222
  Transmission Date: 20190205
  Serious: Yes (Hospitalization)
  Sender: FDA-Public Use
  Company Number: None

PATIENT
  Age: 75 Year
  Sex: Male

DRUGS (1)
  1. AZACITIDINE. [Suspect]
     Active Substance: AZACITIDINE
     Dates: end: 20181207

REACTIONS (4)
  - Fall [None]
  - Lacunar infarction [None]
  - Troponin increased [None]
  - Femur fracture [None]

NARRATIVE: CASE EVENT DATE: 20181026
